FAERS Safety Report 10240278 (Version 2)
Quarter: 2014Q2

REPORT INFORMATION
  Report Type: Spontaneous
  Country: GB (occurrence: GB)
  Receive Date: 20140617
  Receipt Date: 20140617
  Transmission Date: 20141212
  Serious: Yes (Hospitalization, Other)
  Sender: FDA-Public Use
  Company Number: PHFR2014GB003806

PATIENT
  Age: 49 Year
  Sex: Female

DRUGS (5)
  1. CLOZARIL [Suspect]
     Dosage: 250 MG, DAILY
     Route: 048
     Dates: start: 20140424, end: 20140521
  2. CLOZARIL [Suspect]
     Dosage: 250 MG, DAILY
     Route: 048
  3. MIRTAZAPINE [Concomitant]
     Dosage: 30 MG, DAILY
     Dates: end: 20140521
  4. ARIPIPRAZOLE [Concomitant]
     Dosage: 10 MG, DAILY
  5. TRAZODONE [Concomitant]
     Dosage: 10 MG, DAILY
     Route: 048
     Dates: end: 20140520

REACTIONS (7)
  - Intestinal obstruction [Recovered/Resolved]
  - Constipation [Recovered/Resolved]
  - Malaise [Unknown]
  - Abdominal adhesions [Unknown]
  - Ileus [Unknown]
  - White blood cell count increased [Unknown]
  - Platelet count increased [Unknown]
